FAERS Safety Report 19389379 (Version 1)
Quarter: 2021Q2

REPORT INFORMATION
  Report Type: Spontaneous
  Country: US (occurrence: US)
  Receive Date: 20210607
  Receipt Date: 20210607
  Transmission Date: 20210717
  Serious: Yes (Death)
  Sender: FDA-Public Use
  Company Number: None

PATIENT
  Sex: Female
  Weight: 53.4 kg

DRUGS (13)
  1. LUBRINCNT EYE DROP [Concomitant]
  2. PRIMIDONE. [Concomitant]
     Active Substance: PRIMIDONE
  3. MYRBETRIQ [Concomitant]
     Active Substance: MIRABEGRON
  4. XOLAIR [Suspect]
     Active Substance: OMALIZUMAB
     Indication: URTICARIA
     Dosage: ?          OTHER FREQUENCY:EVERY 4 WEEKS;?
     Route: 058
     Dates: start: 20180318
  5. PREDNISONE. [Concomitant]
     Active Substance: PREDNISONE
  6. TERAZOSIN [Concomitant]
     Active Substance: TERAZOSIN HYDROCHLORIDE
  7. FERROUS SULFATE. [Concomitant]
     Active Substance: FERROUS SULFATE
  8. COLESEVELAM [Concomitant]
     Active Substance: COLESEVELAM
  9. TROSPIUM CL [Concomitant]
     Active Substance: TROSPIUM CHLORIDE
  10. BETHANECHOL [Concomitant]
     Active Substance: BETHANECHOL
  11. MULTIVITAMIN [Concomitant]
     Active Substance: VITAMINS
  12. PANTOPRAZOLE [Concomitant]
     Active Substance: PANTOPRAZOLE
  13. LEVETRIACETAM [Concomitant]
     Active Substance: LEVETIRACETAM

REACTIONS (1)
  - Death [None]
